FAERS Safety Report 25062474 (Version 2)
Quarter: 2025Q1

REPORT INFORMATION
  Report Type: Report from Study
  Country: HU (occurrence: HU)
  Receive Date: 20250311
  Receipt Date: 20250324
  Transmission Date: 20250409
  Serious: Yes (Other)
  Sender: NOVARTIS
  Company Number: HU-002147023-NVSC2025HU007223

PATIENT
  Sex: Female

DRUGS (3)
  1. KISQALI [Suspect]
     Active Substance: RIBOCICLIB
     Indication: Breast cancer
     Route: 065
     Dates: start: 20240813
  2. LETROZOLE [Suspect]
     Active Substance: LETROZOLE
     Indication: Breast cancer
     Dosage: 1 DOSAGE FORM, QD
     Route: 065
     Dates: start: 2006
  3. FULVESTRANT [Concomitant]
     Active Substance: FULVESTRANT
     Indication: Endocrine disorder
     Dosage: 2 DOSAGE FORM, QMO
     Route: 030

REACTIONS (12)
  - Breast cancer [Unknown]
  - Malignant neoplasm progression [Unknown]
  - Metastases to bone [Not Recovered/Not Resolved]
  - Metastases to ovary [Unknown]
  - Renal impairment [Not Recovered/Not Resolved]
  - Metastases to uterus [Recovered/Resolved]
  - Vertebral lesion [Not Recovered/Not Resolved]
  - Rash [Recovering/Resolving]
  - Erythema [Recovering/Resolving]
  - Skin exfoliation [Recovering/Resolving]
  - Tumour marker increased [Not Recovered/Not Resolved]
  - Bone lesion [Not Recovered/Not Resolved]

NARRATIVE: CASE EVENT DATE: 20240101
